FAERS Safety Report 25041671 (Version 1)
Quarter: 2025Q1

REPORT INFORMATION
  Report Type: Spontaneous
  Country: US (occurrence: US)
  Receive Date: 20250305
  Receipt Date: 20250305
  Transmission Date: 20250408
  Serious: No
  Sender: Apozeal Pharmaceuticals
  Company Number: US-Apozeal Pharmaceuticals-2172287

PATIENT

DRUGS (3)
  1. LACTULOSE [Suspect]
     Active Substance: LACTULOSE
     Indication: Product used for unknown indication
  2. TORSEMIDE [Concomitant]
     Active Substance: TORSEMIDE
  3. CARVEDILOL [Concomitant]
     Active Substance: CARVEDILOL

REACTIONS (5)
  - Quality of life decreased [Unknown]
  - Ageusia [Unknown]
  - Gait disturbance [Unknown]
  - Muscle spasms [Unknown]
  - Myalgia [Unknown]
